FAERS Safety Report 12147486 (Version 1)
Quarter: 2016Q1

REPORT INFORMATION
  Report Type: Spontaneous
  Country: BE (occurrence: BE)
  Receive Date: 20160304
  Receipt Date: 20160304
  Transmission Date: 20160526
  Serious: Yes (Hospitalization, Other)
  Sender: FDA-Public Use
  Company Number: BE-GLAXOSMITHKLINE-BE2016GSK031276

PATIENT
  Age: 89 Year
  Sex: Female

DRUGS (2)
  1. WARFARIN [Interacting]
     Active Substance: WARFARIN
     Indication: PRODUCT USED FOR UNKNOWN INDICATION
     Dosage: UNK
     Route: 065
  2. DAKTARIN [Suspect]
     Active Substance: MICONAZOLE NITRATE
     Indication: CANDIDA INFECTION
     Dosage: UNK
     Route: 061

REACTIONS (8)
  - Lip haemorrhage [Unknown]
  - Gingival bleeding [Unknown]
  - Haematuria [Unknown]
  - Drug interaction [Unknown]
  - Rectal haemorrhage [Unknown]
  - International normalised ratio increased [Recovered/Resolved]
  - Ecchymosis [Unknown]
  - Haemoglobin decreased [Unknown]
